FAERS Safety Report 17868468 (Version 1)
Quarter: 2020Q2

REPORT INFORMATION
  Report Type: Spontaneous
  Country: FR (occurrence: FR)
  Receive Date: 20200606
  Receipt Date: 20200606
  Transmission Date: 20200714
  Serious: Yes (Other)
  Sender: FDA-Public Use
  Company Number: FR-ACCORD-184330

PATIENT
  Age: 37 Year
  Sex: Female
  Weight: 46 kg

DRUGS (2)
  1. OXALIPLATINE ACCORD [Suspect]
     Active Substance: OXALIPLATIN
     Indication: ANAPLASTIC LARGE-CELL LYMPHOMA
     Dosage: STRENGTH: 5 MG/ML
     Route: 041
     Dates: start: 20200511, end: 20200511
  2. ADCETRIS [Suspect]
     Active Substance: BRENTUXIMAB VEDOTIN
     Indication: ANAPLASTIC LARGE-CELL LYMPHOMA
     Dosage: STRENGTH: 50 MG
     Route: 041
     Dates: start: 20200511, end: 20200511

REACTIONS (3)
  - Peripheral sensory neuropathy [Recovering/Resolving]
  - Off label use [Unknown]
  - Peripheral motor neuropathy [Recovering/Resolving]

NARRATIVE: CASE EVENT DATE: 20200511
